FAERS Safety Report 4718617-3 (Version None)
Quarter: 2005Q3

REPORT INFORMATION
  Report Type: 
  Country: None (occurrence: None)
  Receive Date: 20050720
  Receipt Date: 20041203
  Transmission Date: 20060218
  Serious: Yes (Other)
  Sender: FDA-Public Use
  Company Number: GB-GLAXOSMITHKLINE-B0359538A

PATIENT
  Sex: Male

DRUGS (2)
  1. SEROXAT [Suspect]
     Indication: ANXIETY
     Dosage: 20MG PER DAY
     Route: 065
     Dates: start: 20020702
  2. DIAZEPAM [Concomitant]
     Indication: ANXIETY
     Dosage: 5MG TWICE PER DAY
     Route: 065
     Dates: start: 20020702

REACTIONS (1)
  - COMPLETED SUICIDE [None]
